FAERS Safety Report 4781644-4 (Version None)
Quarter: 2005Q3

REPORT INFORMATION
  Report Type: 
  Country: None (occurrence: None)
  Receive Date: 20050927
  Receipt Date: 20050912
  Transmission Date: 20060218
  Serious: Yes (Hospitalization, Disabling)
  Sender: FDA-Public Use
  Company Number: 2005000538

PATIENT
  Age: 67 Year
  Sex: Male

DRUGS (8)
  1. ERLOTINIB HCL [Suspect]
     Indication: NON-SMALL CELL LUNG CANCER
     Dosage: 100 MG (QD), ORAL
     Route: 048
     Dates: start: 20041214, end: 20050201
  2. SPIRONOLACTONE [Concomitant]
  3. FUROSEMIDE [Concomitant]
  4. ACETYLCYSTEINE [Concomitant]
  5. ASPIRIN [Concomitant]
  6. PREDNISONE [Concomitant]
  7. ALBUTEROL SULFATE [Concomitant]
  8. ZOMETA [Concomitant]

REACTIONS (7)
  - DYSPHAGIA [None]
  - MALIGNANT NEOPLASM PROGRESSION [None]
  - METASTASES TO LUNG [None]
  - NON-SMALL CELL LUNG CANCER [None]
  - RASH [None]
  - VISION BLURRED [None]
  - VISUAL DISTURBANCE [None]
